FAERS Safety Report 5486787-8 (Version None)
Quarter: 2007Q4

REPORT INFORMATION
  Report Type: 
  Country: None (occurrence: None)
  Receive Date: 20071016
  Receipt Date: 20071015
  Transmission Date: 20080405
  Serious: Yes (Other)
  Sender: FDA-Public Use
  Company Number: B0491176A

PATIENT
  Age: 50 Year
  Sex: Female

DRUGS (2)
  1. CLAMOXYL [Suspect]
     Indication: DYSPHAGIA
     Route: 048
     Dates: start: 20071010, end: 20071013
  2. LEVOTHYROX [Concomitant]
     Indication: HYPOTHYROIDISM
     Route: 065

REACTIONS (7)
  - ARTHRALGIA [None]
  - BACK PAIN [None]
  - BLOOD URINE PRESENT [None]
  - INFLAMMATION [None]
  - OEDEMA PERIPHERAL [None]
  - PROTEIN URINE PRESENT [None]
  - TRANSAMINASES ABNORMAL [None]
